FAERS Safety Report 4905292-8 (Version None)
Quarter: 2006Q1

REPORT INFORMATION
  Report Type: 
  Country: None (occurrence: None)
  Receive Date: 20060207
  Receipt Date: 20060207
  Transmission Date: 20060701
  Serious: Yes (Life-Threatening, Hospitalization)
  Sender: FDA-Public Use
  Company Number: None

PATIENT
  Age: 81 Year
  Sex: Female
  Weight: 69.4 kg

DRUGS (13)
  1. TEQUIN [Suspect]
     Indication: UPPER RESPIRATORY TRACT INFECTION
     Dosage: 400MG  DAILY  PO
     Route: 048
     Dates: start: 20050328, end: 20050331
  2. MECLIZINE [Concomitant]
  3. MELOXICAM [Concomitant]
  4. FOLIC ACID [Concomitant]
  5. METHOTREXATE [Concomitant]
  6. LANSOPRAZOLE [Concomitant]
  7. THYROID TAB [Concomitant]
  8. DYAZIDE [Concomitant]
  9. MIACALCIN [Concomitant]
  10. ASCORBIC ACID [Concomitant]
  11. VITAMIN E [Concomitant]
  12. CITRACAL [Concomitant]
  13. ATENOLOL [Concomitant]

REACTIONS (8)
  - ATRIAL FIBRILLATION [None]
  - BLOOD PRESSURE DIASTOLIC DECREASED [None]
  - BLOOD PRESSURE SYSTOLIC INCREASED [None]
  - DIZZINESS [None]
  - ELECTROCARDIOGRAM QT PROLONGED [None]
  - HEART RATE DECREASED [None]
  - PALPITATIONS [None]
  - TORSADE DE POINTES [None]
